FAERS Safety Report 7292797-0 (Version None)
Quarter: 2011Q1

REPORT INFORMATION
  Report Type: 
  Country: None (occurrence: None)
  Receive Date: 20110215
  Receipt Date: 20110202
  Transmission Date: 20110831
  Serious: Yes (Hospitalization, Other)
  Sender: FDA-Public Use
  Company Number: US-ELI_LILLY_AND_COMPANY-US201008000721

PATIENT
  Sex: Female

DRUGS (12)
  1. GABAPENTIN [Concomitant]
     Dosage: 100 MG, UNK
  2. VITAMIN D [Concomitant]
     Dosage: 400 IU, UNK
  3. GLUCOSAMINE [Concomitant]
     Dosage: UNK, 2/D
  4. IPRATROPIUM BROMIDE [Concomitant]
     Dosage: UNK, AS NEEDED
     Route: 055
  5. OXYBUTYNIN [Concomitant]
     Dosage: 20 MG, DAILY (1/D)
  6. ASPIRIN [Concomitant]
     Dosage: 325 MG, DAILY (1/D)
  7. SIMVASTATIN [Concomitant]
     Dosage: 20 MG, DAILY (1/D)
  8. METFORMIN [Concomitant]
  9. FORTEO [Suspect]
     Dosage: 20 UG, DAILY (1/D)
     Dates: start: 20110127
  10. FUROSEMIDE [Concomitant]
     Dosage: 20 MG, DAILY (1/D)
  11. TUMS [Concomitant]
     Dosage: UNK, DAILY (1/D)
  12. FORTEO [Suspect]
     Indication: OSTEOPOROSIS
     Dosage: 20 UG, DAILY (1/D)
     Dates: end: 20101201

REACTIONS (6)
  - NON-CARDIAC CHEST PAIN [None]
  - LUNG NEOPLASM MALIGNANT [None]
  - LUNG DISORDER [None]
  - PANCREATIC ENZYMES INCREASED [None]
  - HEPATIC ENZYME INCREASED [None]
  - DRUG DOSE OMISSION [None]
